FAERS Safety Report 4494638-3 (Version None)
Quarter: 2004Q4

REPORT INFORMATION
  Report Type: 
  Country: None (occurrence: None)
  Receive Date: 20041103
  Receipt Date: 20041018
  Transmission Date: 20050328
  Serious: Yes (Death, Hospitalization)
  Sender: FDA-Public Use
  Company Number: DSA_25218_2004

PATIENT
  Sex: Male

DRUGS (2)
  1. TEMESTA [Suspect]
     Indication: PERSONALITY CHANGE
     Dosage: 10 MG UNK PO
     Route: 048
     Dates: start: 20040527, end: 20040529
  2. REMERON [Concomitant]

REACTIONS (2)
  - COMPLETED SUICIDE [None]
  - INJURY ASPHYXIATION [None]
